FAERS Safety Report 18712540 (Version 1)
Quarter: 2021Q1

REPORT INFORMATION
  Report Type: Other
  Country: BR (occurrence: BR)
  Receive Date: 20210107
  Receipt Date: 20210107
  Transmission Date: 20210419
  Serious: Yes (Hospitalization, Other)
  Sender: FDA-Public Use
  Company Number: BR-EYWA PHARMA INC.-2104062

PATIENT
  Age: 47 Year
  Sex: Male
  Weight: 84.5 kg

DRUGS (2)
  1. DIPYRONE [Suspect]
     Active Substance: DIPYRONE
     Route: 042
  2. ONDANSETRON [Suspect]
     Active Substance: ONDANSETRON
     Indication: PRODUCT USED FOR UNKNOWN INDICATION
     Route: 065

REACTIONS (1)
  - Hepatotoxicity [Unknown]
